FAERS Safety Report 8723876 (Version 3)
Quarter: 2012Q4

REPORT INFORMATION
  Report Type: Spontaneous
  Country: GB (occurrence: None)
  Receive Date: 20120727
  Receipt Date: 20120918
  Transmission Date: 20130627
  Serious: Yes (Disabling)
  Sender: FDA-Public Use
  Company Number: DSA_58616_2012

PATIENT
  Age: 36 Year
  Sex: Male

DRUGS (2)
  1. METRONIDAZOLE (METRONIDAZOLE) [Suspect]
     Indication: DENTAL CARE
     Dosage: (DF)
     Route: 048
  2. BECONASE AQUEOUS NASAL SPRAY [Concomitant]

REACTIONS (4)
  - Optic neuritis [None]
  - Tinnitus [None]
  - Psychotic disorder [None]
  - Mental disorder [None]
